FAERS Safety Report 5316307-X (Version None)
Quarter: 2007Q2

REPORT INFORMATION
  Report Type: 
  Country: None (occurrence: None)
  Receive Date: 20070430
  Receipt Date: 20070417
  Transmission Date: 20071010
  Serious: Yes (Hospitalization)
  Sender: FDA-Public Use
  Company Number: DSU-2007-00084

PATIENT
  Age: 51 Year
  Sex: Female

DRUGS (2)
  1. FLOXIN OTIC [Suspect]
     Indication: OTITIS EXTERNA
     Dosage: 20 GTT (10 GTT, BID), AURICULAR (OTIC)
     Route: 001
     Dates: start: 20070123, end: 20070126
  2. MULTIVITAMIN [Concomitant]

REACTIONS (7)
  - ASTHENIA [None]
  - EYE DISORDER [None]
  - INADEQUATE ANALGESIA [None]
  - NO THERAPEUTIC RESPONSE [None]
  - PAIN [None]
  - TENDON INJURY [None]
  - TENDON RUPTURE [None]
